FAERS Safety Report 9078390 (Version 1)
Quarter: 2013Q1

REPORT INFORMATION
  Report Type: Report from Study
  Country: US (occurrence: US)
  Receive Date: 20130215
  Receipt Date: 20130215
  Transmission Date: 20140127
  Serious: Yes (Other)
  Sender: FDA-Public Use
  Company Number: US-ABBOTT-13P-163-1046461-00

PATIENT
  Sex: Female
  Weight: 92.16 kg

DRUGS (12)
  1. HUMIRA [Suspect]
     Indication: UVEITIS
     Dates: start: 2009, end: 2011
  2. HUMIRA [Suspect]
     Dates: start: 2011
  3. PREDNISONE [Concomitant]
     Indication: UVEITIS
  4. METHOTREXATE [Concomitant]
     Indication: UVEITIS
  5. LOPRESSOR [Concomitant]
     Indication: PRODUCT USED FOR UNKNOWN INDICATION
  6. FOLIC ACID [Concomitant]
     Indication: VITAMIN SUPPLEMENTATION
  7. OMEPRAZOLE [Concomitant]
     Indication: GASTROOESOPHAGEAL REFLUX DISEASE
  8. FENTANYL [Concomitant]
     Indication: PAIN
  9. VALIUM [Concomitant]
     Indication: PAIN
  10. CARAFATE [Concomitant]
     Indication: PRODUCT USED FOR UNKNOWN INDICATION
  11. METHAZOLAMIDE [Concomitant]
     Indication: PRODUCT USED FOR UNKNOWN INDICATION
  12. FLEXERIL [Concomitant]
     Indication: PRODUCT USED FOR UNKNOWN INDICATION

REACTIONS (8)
  - Visual acuity reduced [Not Recovered/Not Resolved]
  - Drug ineffective [Not Recovered/Not Resolved]
  - Adrenal insufficiency [Recovered/Resolved]
  - Vomiting [Recovered/Resolved]
  - Hypotension [Recovered/Resolved]
  - Arrhythmia [Recovered/Resolved]
  - Migraine [Recovered/Resolved]
  - Off label use [Not Recovered/Not Resolved]
